FAERS Safety Report 6635676-1 (Version None)
Quarter: 2010Q1

REPORT INFORMATION
  Report Type: 
  Country: None (occurrence: None)
  Receive Date: 20100312
  Receipt Date: 20100312
  Transmission Date: 20100710
  Serious: Yes (Other)
  Sender: FDA-Public Use
  Company Number: None

PATIENT
  Age: 32 Year
  Sex: Female
  Weight: 79.3795 kg

DRUGS (1)
  1. SINGULAIR [Suspect]

REACTIONS (7)
  - FATIGUE [None]
  - HYPERSOMNIA [None]
  - LOCAL SWELLING [None]
  - MYALGIA [None]
  - SWELLING [None]
  - SWELLING FACE [None]
  - TENDERNESS [None]
